FAERS Safety Report 19353016 (Version 2)
Quarter: 2021Q2

REPORT INFORMATION
  Report Type: Spontaneous
  Country: US (occurrence: US)
  Receive Date: 20210601
  Receipt Date: 20210601
  Transmission Date: 20210717
  Serious: Yes (Death)
  Sender: FDA-Public Use
  Company Number: US-CHIESI USA, INC.-2021CHF02546

PATIENT

DRUGS (4)
  1. RETAVASE [Suspect]
     Active Substance: RETEPLASE
     Indication: PRODUCT USED FOR UNKNOWN INDICATION
     Dosage: UNK
     Route: 065
  2. STERILE WATER [Suspect]
     Active Substance: WATER
     Indication: PRODUCT USED FOR UNKNOWN INDICATION
     Dosage: UNK
     Route: 065
  3. SYRINGE GRADUATED [Suspect]
     Active Substance: DEVICE
     Indication: PRODUCT USED FOR UNKNOWN INDICATION
     Dosage: UNK
     Route: 065
  4. RECONSTITUTION SPIKE [Suspect]
     Active Substance: DEVICE
     Indication: PRODUCT USED FOR UNKNOWN INDICATION
     Dosage: UNK
     Route: 065

REACTIONS (1)
  - Death [Fatal]
